FAERS Safety Report 8193589-0 (Version None)
Quarter: 2012Q1

REPORT INFORMATION
  Report Type: 
  Country: None (occurrence: None)
  Receive Date: 20120308
  Receipt Date: 20120305
  Transmission Date: 20120608
  Serious: Yes (Hospitalization)
  Sender: FDA-Public Use
  Company Number: US-PFIZER INC-2012059742

PATIENT
  Sex: Female

DRUGS (1)
  1. CORDARONE [Suspect]
     Indication: HEART RATE IRREGULAR
     Dosage: 200 MG, 1X/DAY

REACTIONS (2)
  - ASTHENIA [None]
  - SYNCOPE [None]
